FAERS Safety Report 7941233-7 (Version None)
Quarter: 2011Q4

REPORT INFORMATION
  Report Type: 
  Country: None (occurrence: None)
  Receive Date: 20111122
  Receipt Date: 20111111
  Transmission Date: 20120403
  Serious: Yes (Other)
  Sender: FDA-Public Use
  Company Number: DSJ-2011-24499

PATIENT
  Age: 69 Year
  Sex: Male

DRUGS (3)
  1. OMEPRAZOLE [Concomitant]
  2. ALPRAZOLAM [Concomitant]
  3. BENICAR HCT [Suspect]
     Indication: HYPERTENSION
     Dosage: 40/12.5 MG (1 IN 1 D), PER ORAL
     Route: 048

REACTIONS (3)
  - CEREBROVASCULAR ACCIDENT [None]
  - DRUG INEFFECTIVE [None]
  - VISUAL ACUITY REDUCED [None]
